FAERS Safety Report 10477187 (Version 1)
Quarter: 2014Q3

REPORT INFORMATION
  Report Type: Spontaneous
  Country: US (occurrence: US)
  Receive Date: 20140926
  Receipt Date: 20140926
  Transmission Date: 20150326
  Serious: Yes (Other)
  Sender: FDA-Public Use
  Company Number: US-UNITED THERAPEUTICS-UNT-2014-007827

PATIENT
  Sex: Female

DRUGS (1)
  1. TYVASO [Suspect]
     Active Substance: TREPROSTINIL
     Indication: PULMONARY HYPERTENSION
     Dosage: 54 ?G, QID
     Dates: start: 20131202, end: 20140228

REACTIONS (3)
  - Headache [Unknown]
  - Therapy cessation [Unknown]
  - Brain operation [Unknown]

NARRATIVE: CASE EVENT DATE: 20140228
